FAERS Safety Report 21846718 (Version 1)
Quarter: 2023Q1

REPORT INFORMATION
  Report Type: Spontaneous
  Country: DE (occurrence: DE)
  Receive Date: 20230111
  Receipt Date: 20230111
  Transmission Date: 20230418
  Serious: Yes (Hospitalization, Other)
  Sender: FDA-Public Use
  Company Number: DE-BAXTER-2022BAX031520

PATIENT
  Age: 56 Year
  Sex: Female

DRUGS (8)
  1. CYCLOPHOSPHAMIDE [Suspect]
     Active Substance: CYCLOPHOSPHAMIDE
     Indication: Product used for unknown indication
     Dosage: 600 MG/M2, ROUTE OF ADMINISTRATION: INFUSION, 1ST CYCLE, EC REGIMEN CHEMOTHERAPY
     Route: 050
     Dates: start: 20221124, end: 20221124
  2. CYCLOPHOSPHAMIDE [Suspect]
     Active Substance: CYCLOPHOSPHAMIDE
     Dosage: 600 MG/M2, ROUTE OF ADMINISTRATION: INFUSION, 2ND CYCLE, EC REGIMEN CHEMOTHERAPY
     Route: 050
     Dates: start: 20221215, end: 20221215
  3. MESNA [Suspect]
     Active Substance: MESNA
     Indication: Product used for unknown indication
     Dosage: 400 MG
     Route: 040
     Dates: start: 20221124
  4. MESNA [Suspect]
     Active Substance: MESNA
     Dosage: 400 MG
     Route: 040
     Dates: start: 20221215
  5. EPIRUBICIN [Suspect]
     Active Substance: EPIRUBICIN
     Indication: Product used for unknown indication
     Dosage: 1ST CYCLE, EC REGIMEN CHEMOTHERAPY
     Route: 065
     Dates: start: 20221124
  6. EPIRUBICIN [Suspect]
     Active Substance: EPIRUBICIN
     Dosage: 2ND CYCLE, EC REGIMEN CHEMOTHERAPY
     Route: 065
     Dates: start: 20221212
  7. PEGFILGRASTIM [Concomitant]
     Active Substance: PEGFILGRASTIM
     Indication: Product used for unknown indication
     Dosage: 6 MG
     Route: 065
     Dates: start: 20221125
  8. PEGFILGRASTIM [Concomitant]
     Active Substance: PEGFILGRASTIM
     Dosage: 6 MG
     Route: 065
     Dates: start: 20221216

REACTIONS (8)
  - Febrile neutropenia [Unknown]
  - Chills [Unknown]
  - Pyrexia [Unknown]
  - White blood cell count decreased [Unknown]
  - Neutrophil count decreased [Unknown]
  - Platelet count decreased [Unknown]
  - C-reactive protein increased [Unknown]
  - Haemoglobin decreased [Unknown]

NARRATIVE: CASE EVENT DATE: 20221201
